FAERS Safety Report 18080008 (Version 2)
Quarter: 2020Q3

REPORT INFORMATION
  Report Type: Spontaneous
  Country: US (occurrence: US)
  Receive Date: 20200728
  Receipt Date: 20200731
  Transmission Date: 20201103
  Serious: No
  Sender: FDA-Public Use
  Company Number: US-JNJFOC-20200734258

PATIENT

DRUGS (1)
  1. REMICADE [Suspect]
     Active Substance: INFLIXIMAB
     Indication: PRODUCT USED FOR UNKNOWN INDICATION
     Dosage: HAD MEDICATION IN 2018.
     Route: 042

REACTIONS (5)
  - Insomnia [Unknown]
  - Drug ineffective [Unknown]
  - Joint stiffness [Unknown]
  - Dermatitis [Unknown]
  - Back pain [Unknown]

NARRATIVE: CASE EVENT DATE: 20200722
